FAERS Safety Report 5745386-0 (Version None)
Quarter: 2008Q2

REPORT INFORMATION
  Report Type: 
  Country: None (occurrence: None)
  Receive Date: 20080521
  Receipt Date: 20080515
  Transmission Date: 20081010
  Serious: Yes (Life-Threatening, Hospitalization)
  Sender: FDA-Public Use
  Company Number: GB-TEVA-171716ISR

PATIENT
  Age: 87 Year
  Sex: Male
  Weight: 76 kg

DRUGS (1)
  1. CLARITHROMYCIN [Suspect]
     Indication: SKIN INFECTION
     Route: 048
     Dates: start: 20080410, end: 20080421

REACTIONS (5)
  - COAGULOPATHY [None]
  - HYPERBILIRUBINAEMIA [None]
  - HYPOTENSION [None]
  - JAUNDICE [None]
  - RENAL FAILURE ACUTE [None]
